FAERS Safety Report 15911935 (Version 1)
Quarter: 2019Q1

REPORT INFORMATION
  Report Type: Spontaneous
  Country: US (occurrence: US)
  Receive Date: 20190204
  Receipt Date: 20190204
  Transmission Date: 20190417
  Serious: No
  Sender: FDA-Public Use
  Company Number: US-ABBVIE-18K-163-2367116-00

PATIENT
  Sex: Female

DRUGS (1)
  1. HUMIRA [Suspect]
     Active Substance: ADALIMUMAB
     Indication: HIDRADENITIS
     Route: 058

REACTIONS (12)
  - Immunodeficiency [Unknown]
  - Urinary tract infection [Unknown]
  - Feeling abnormal [Unknown]
  - Drug effect decreased [Unknown]
  - Abnormal loss of weight [Unknown]
  - Cold sweat [Unknown]
  - Dizziness [Unknown]
  - Pneumonia [Unknown]
  - Asthenia [Unknown]
  - Hypophagia [Unknown]
  - Vomiting [Unknown]
  - Urinary tract infection [Recovered/Resolved]
